FAERS Safety Report 14112855 (Version 1)
Quarter: 2017Q4

REPORT INFORMATION
  Report Type: Spontaneous
  Country: US (occurrence: US)
  Receive Date: 20171022
  Receipt Date: 20171022
  Transmission Date: 20180321
  Serious: Yes (Death, Hospitalization, Other)
  Sender: FDA-Public Use
  Company Number: US-TEVA-818214ACC

PATIENT
  Age: 64 Year
  Sex: Male

DRUGS (2)
  1. DECADRON [Concomitant]
     Active Substance: DEXAMETHASONE
     Indication: PLASMA CELL MYELOMA
     Route: 065
  2. BENDAMUSTINE HYDROCHLORIDE. [Suspect]
     Active Substance: BENDAMUSTINE HYDROCHLORIDE
     Indication: PLASMA CELL MYELOMA
     Route: 042

REACTIONS (7)
  - Acute hepatic failure [Unknown]
  - Off label use [Unknown]
  - Gait disturbance [Unknown]
  - Acute kidney injury [Unknown]
  - Death [Fatal]
  - Back pain [Unknown]
  - Pancytopenia [Unknown]
